FAERS Safety Report 9311310 (Version 4)
Quarter: 2013Q3

REPORT INFORMATION
  Report Type: Spontaneous
  Country: JP (occurrence: JP)
  Receive Date: 20130528
  Receipt Date: 20130705
  Transmission Date: 20140515
  Serious: Yes (Other)
  Sender: FDA-Public Use
  Company Number: JP-ASTELLAS-2013JP006071

PATIENT
  Age: 80 Year
  Sex: Female

DRUGS (8)
  1. VESICARE [Suspect]
     Indication: HYPERTONIC BLADDER
     Dosage: 2.5 MG, UID/QD
     Route: 048
     Dates: start: 20130315, end: 20130517
  2. ARICEPT [Concomitant]
     Dosage: 10 MG, UNKNOWN/D
     Route: 048
  3. NAUZELIN [Concomitant]
     Dosage: UNK
     Route: 048
  4. EVISTA [Concomitant]
     Dosage: UNK
     Route: 048
  5. EXCELASE [Concomitant]
     Dosage: UNK
     Route: 048
  6. LIMARMONE [Concomitant]
     Dosage: UNK
     Route: 048
  7. MIYA BM [Concomitant]
     Dosage: UNK
     Route: 048
  8. PROTECADIN [Concomitant]
     Dosage: 10 MG, UNKNOWN/D
     Route: 048

REACTIONS (1)
  - Dementia with Lewy bodies [Not Recovered/Not Resolved]
